FAERS Safety Report 7015706-8 (Version None)
Quarter: 2010Q3

REPORT INFORMATION
  Report Type: 
  Country: None (occurrence: None)
  Receive Date: 20100927
  Receipt Date: 20100609
  Transmission Date: 20110219
  Serious: No
  Sender: FDA-Public Use
  Company Number: US-ASTRAZENECA-2010SE18141

PATIENT
  Age: 81 Year
  Sex: Female
  Weight: 61.7 kg

DRUGS (2)
  1. ARIMIDEX [Suspect]
     Indication: BREAST CANCER
     Route: 048
     Dates: start: 20090901
  2. TAMOXIFEN CITRATE [Suspect]
     Route: 048
     Dates: start: 20100428

REACTIONS (5)
  - FEELING HOT [None]
  - HOT FLUSH [None]
  - NEUROPATHY PERIPHERAL [None]
  - PAIN [None]
  - SLEEP DISORDER [None]
